FAERS Safety Report 17954575 (Version 1)
Quarter: 2020Q2

REPORT INFORMATION
  Report Type: Spontaneous
  Country: CH (occurrence: CH)
  Receive Date: 20200629
  Receipt Date: 20200629
  Transmission Date: 20200714
  Serious: Yes (Other)
  Sender: FDA-Public Use
  Company Number: CH-SA-2019SA334053

PATIENT

DRUGS (4)
  1. MYOZYME [Suspect]
     Active Substance: ALGLUCOSIDASE ALFA
     Indication: GLYCOGEN STORAGE DISEASE TYPE II
     Dosage: UNK UNK, UNK
     Route: 041
     Dates: start: 20100629
  2. OMEPRAZOLE. [Concomitant]
     Active Substance: OMEPRAZOLE
     Dosage: 20 MG, QD
  3. MYOZYME [Suspect]
     Active Substance: ALGLUCOSIDASE ALFA
     Dosage: UNK UNK, UNK
     Route: 065
  4. LEVOCETIRIZIN [Concomitant]
     Active Substance: LEVOCETIRIZINE DIHYDROCHLORIDE
     Indication: PREMEDICATION
     Dosage: 5 MG EVENING BEFORE AND MORNING ONCE
     Dates: start: 20191125, end: 20191126

REACTIONS (5)
  - Respiratory symptom [Unknown]
  - Pneumonia [Unknown]
  - Sense of oppression [Unknown]
  - Rash [Unknown]
  - Blood pressure increased [Unknown]

NARRATIVE: CASE EVENT DATE: 20191126
